FAERS Safety Report 6348581-5 (Version None)
Quarter: 2009Q3

REPORT INFORMATION
  Report Type: 
  Country: None (occurrence: None)
  Receive Date: 20090911
  Receipt Date: 20071008
  Transmission Date: 20100115
  Serious: Yes (Hospitalization, Other)
  Sender: FDA-Public Use
  Company Number: US-ASTRAZENECA-2009SE11129

PATIENT
  Age: 48 Year
  Sex: Male

DRUGS (10)
  1. SEROQUEL [Suspect]
     Route: 048
     Dates: start: 20030218
  2. TRAZODONE [Concomitant]
     Dosage: STRENGTH - 50 MG, 100 MG, DOSE - 400 MG
     Route: 048
     Dates: start: 20000217
  3. IMIPRAMINE [Concomitant]
     Dates: start: 20051005
  4. GEODON [Concomitant]
     Dates: start: 20051005
  5. METFORMIN HCL [Concomitant]
     Dates: start: 20051005
  6. LITHIUM CARBONATE [Concomitant]
     Route: 048
     Dates: start: 20050207
  7. PAXIL CR [Concomitant]
     Route: 048
     Dates: start: 20050207
  8. RISPERDAL [Concomitant]
     Route: 048
     Dates: start: 20030213
  9. ATIVAN [Concomitant]
     Dates: start: 20050207
  10. DESYREL [Concomitant]
     Dates: start: 20050207

REACTIONS (21)
  - ABULIA [None]
  - ADJUSTMENT DISORDER [None]
  - APATHY [None]
  - BIPOLAR DISORDER [None]
  - COGNITIVE DISORDER [None]
  - CONFUSIONAL STATE [None]
  - DEPRESSION [None]
  - DIABETES MELLITUS [None]
  - ELECTROCONVULSIVE THERAPY [None]
  - HEAD INJURY [None]
  - HEPATITIS C [None]
  - HYPOTHYROIDISM [None]
  - LYME DISEASE [None]
  - OSTEOARTHRITIS [None]
  - PARKINSONISM [None]
  - POLYSUBSTANCE DEPENDENCE [None]
  - PSYCHOTIC DISORDER [None]
  - SKIN DEPIGMENTATION [None]
  - SLEEP APNOEA SYNDROME [None]
  - SUICIDE ATTEMPT [None]
  - TREMOR [None]
